FAERS Safety Report 6402374-9 (Version None)
Quarter: 2009Q4

REPORT INFORMATION
  Report Type: 
  Country: None (occurrence: None)
  Receive Date: 20091015
  Receipt Date: 20091005
  Transmission Date: 20100525
  Serious: Yes (Death)
  Sender: FDA-Public Use
  Company Number: NO-PFIZER INC-2009278051

PATIENT
  Age: 53 Year

DRUGS (1)
  1. LYRICA [Suspect]
     Indication: DYSTONIA
     Dosage: OVERDOSE
     Route: 048
     Dates: start: 20070101

REACTIONS (4)
  - BRAIN HERNIATION [None]
  - BRAIN OEDEMA [None]
  - CARDIAC ARREST [None]
  - DEATH [None]
